FAERS Safety Report 10270944 (Version 1)
Quarter: 2014Q1

REPORT INFORMATION
  Report Type: Spontaneous
  Country: US (occurrence: None)
  Receive Date: 20140306
  Receipt Date: 20140306
  Transmission Date: 20141002
  Serious: Yes (Hospitalization)
  Sender: FDA-Public Use
  Company Number: 163-21880-13082363

PATIENT
  Age: 79 Year
  Sex: Male
  Weight: 97.1 kg

DRUGS (12)
  1. REVLIMID (LENALIDOMIDE) (5 MILLIGRAM, CAPSULES) [Suspect]
     Indication: PLASMA CELL MYELOMA
     Dosage: 5 MG, 21 IN 28 D, PO?
     Route: 048
     Dates: start: 201211
  2. PROCHLORPERAZINE MALEATE (PROCHLORPERAZINE MALEATE) (UNKNOWN) [Concomitant]
  3. METOPROLOL SUCCINATGE (METOPROLOL SUCCINATE) (UNKNOWN) [Concomitant]
  4. ACYCLOVIR (ACICLOVIR) (UNKNOWN) [Concomitant]
  5. COUMADIN (WARFARIN SODIUM) (TABLETS) [Concomitant]
  6. MULTIVITAMINS (MULTIVITAMINS) (UNKNOWN) [Concomitant]
  7. OXYCODONE (OXYCODONE) (UNKNOWN) (OXYCODONE) [Concomitant]
  8. DEXAMETHASONE (DEXAMETHASONE) (UNKNOWN) [Concomitant]
  9. PREVACID SOLUTAB (LANSOPRAZOLE) (UNKNOWN) [Concomitant]
  10. DILTIAZEM HCL (DILTIAZEM HYDROCHLORIDE HYDROCHLORIDE) (UNKNOWN) [Concomitant]
  11. BABY ASPIRIN (ACETYLSALICYLIC ACID) (UNKNOWN) [Concomitant]
  12. ZOCOR (SIMVASTATIN) (UNKNOWN) [Concomitant]

REACTIONS (1)
  - Pneumonia [None]
